FAERS Safety Report 19212451 (Version 1)
Quarter: 2021Q2

REPORT INFORMATION
  Report Type: Spontaneous
  Country: AU (occurrence: AU)
  Receive Date: 20210504
  Receipt Date: 20210504
  Transmission Date: 20210717
  Serious: Yes (Other)
  Sender: FDA-Public Use
  Company Number: AU-BAYER-2021-132970

PATIENT
  Sex: Female

DRUGS (2)
  1. LAROTRECTINIB [Suspect]
     Active Substance: LAROTRECTINIB
     Indication: NERVOUS SYSTEM NEOPLASM
     Dosage: TREATMENT WITH LAROTRECTINIB FOR APPROXIMATELY 2 YRS
  2. LAROTRECTINIB [Suspect]
     Active Substance: LAROTRECTINIB
     Indication: VASCULAR NEOPLASM
     Dosage: OFF LAROTRECTINIB FOR 3 MONTHS

REACTIONS (2)
  - Vascular neoplasm [None]
  - Nervous system neoplasm [None]
